FAERS Safety Report 15557882 (Version 1)
Quarter: 2018Q4

REPORT INFORMATION
  Report Type: Spontaneous
  Country: HU (occurrence: HU)
  Receive Date: 20181027
  Receipt Date: 20181027
  Transmission Date: 20190205
  Serious: Yes (Hospitalization, Other)
  Sender: FDA-Public Use
  Company Number: HU-009507513-1810HUN007663

PATIENT
  Age: 69 Year
  Sex: Female
  Weight: 57 kg

DRUGS (11)
  1. CORVATON [Concomitant]
     Active Substance: MOLSIDOMINE
     Dosage: UNK
  2. XANAX [Interacting]
     Active Substance: ALPRAZOLAM
     Indication: MENTAL DISORDER
     Dosage: 0.75 MG, QD (0.25 MG, 3X/DAY)
     Dates: start: 200710, end: 2010
  3. SALAZOPYRIN [Concomitant]
     Active Substance: SULFASALAZINE
     Dosage: UNK
  4. PLAVIX [Interacting]
     Active Substance: CLOPIDOGREL BISULFATE
     Dosage: UNK
     Dates: end: 200812
  5. TALLITON [Concomitant]
     Active Substance: CARVEDILOL
     Dosage: UNK
  6. XANAX [Interacting]
     Active Substance: ALPRAZOLAM
     Indication: PANIC REACTION
     Dosage: 0.5 MG, QD (0.25 MG, 2X/DAY)
     Dates: start: 2010, end: 20111118
  7. TICLID [Interacting]
     Active Substance: TICLOPIDINE HYDROCHLORIDE
     Dosage: UNK, QD
     Dates: start: 200901
  8. TRITACE [Concomitant]
     Active Substance: RAMIPRIL
     Dosage: UNK
  9. MIDAZOLAM [Concomitant]
     Active Substance: MIDAZOLAM HYDROCHLORIDE
     Indication: SEDATIVE THERAPY
     Dosage: UNK
  10. EZETROL [Suspect]
     Active Substance: EZETIMIBE
     Dosage: UNK
  11. NORFLOXACIN [Concomitant]
     Active Substance: NORFLOXACIN
     Dosage: UNK
     Dates: start: 20101104, end: 20101106

REACTIONS (11)
  - Anaemia [Unknown]
  - Hypotension [Unknown]
  - Sunburn [Recovering/Resolving]
  - Renal impairment [Unknown]
  - Toxicity to various agents [Unknown]
  - Heat stroke [Recovering/Resolving]
  - Nephrolithiasis [Unknown]
  - Hormone level abnormal [Unknown]
  - Drug interaction [Unknown]
  - Renal pain [Unknown]
  - Photosensitivity reaction [Recovering/Resolving]

NARRATIVE: CASE EVENT DATE: 200710
